FAERS Safety Report 7167249-9 (Version None)
Quarter: 2010Q4

REPORT INFORMATION
  Report Type: 
  Country: None (occurrence: None)
  Receive Date: 20101202
  Receipt Date: 20101120
  Transmission Date: 20110411
  Serious: Yes (Hospitalization, Other)
  Sender: FDA-Public Use
  Company Number: 2010AP002492

PATIENT
  Age: 20 Month
  Sex: Male

DRUGS (1)
  1. LAMOTRIGINE [Suspect]
     Dosage: 150 MG; ; PO
     Route: 048

REACTIONS (8)
  - ACCIDENTAL OVERDOSE [None]
  - ATAXIA [None]
  - CONVULSION [None]
  - CRYING [None]
  - HEART RATE INCREASED [None]
  - MENTAL STATUS CHANGES [None]
  - SUDDEN ONSET OF SLEEP [None]
  - VOMITING [None]
